FAERS Safety Report 10420606 (Version 1)
Quarter: 2014Q3

REPORT INFORMATION
  Report Type: Spontaneous
  Country: US (occurrence: None)
  Receive Date: 20140828
  Receipt Date: 20140828
  Transmission Date: 20150326
  Serious: Yes (Disabling)
  Sender: FDA-Public Use
  Company Number: None

PATIENT
  Age: 46 Year
  Sex: Female
  Weight: 116.58 kg

DRUGS (1)
  1. METHYLPHENIDATE ER [Suspect]
     Active Substance: METHYLPHENIDATE
     Indication: ATTENTION DEFICIT/HYPERACTIVITY DISORDER
     Dosage: 1  ONCE DAILY  TAKEN BY MOUTH
     Route: 048
     Dates: start: 20140826, end: 20140826

REACTIONS (7)
  - Anxiety [None]
  - Product quality issue [None]
  - Decreased appetite [None]
  - Product substitution issue [None]
  - Head discomfort [None]
  - Irritability [None]
  - Affect lability [None]

NARRATIVE: CASE EVENT DATE: 20140826
